FAERS Safety Report 21493151 (Version 1)
Quarter: 2022Q4

REPORT INFORMATION
  Report Type: Spontaneous
  Country: US (occurrence: US)
  Receive Date: 20221021
  Receipt Date: 20221021
  Transmission Date: 20230113
  Serious: Yes (Other)
  Sender: FDA-Public Use
  Company Number: US-MYLANLABS-2022M1116044

PATIENT
  Age: 6 Year
  Sex: Male

DRUGS (2)
  1. PREDNISONE [Suspect]
     Active Substance: PREDNISONE
     Indication: Fibrodysplasia ossificans progressiva
     Dosage: UNK
     Route: 065
  2. IMATINIB [Suspect]
     Active Substance: IMATINIB
     Indication: Fibrodysplasia ossificans progressiva
     Dosage: 340 MILLIGRAM/SQ. METER, QD
     Route: 048

REACTIONS (3)
  - Drug ineffective [Unknown]
  - Dyspepsia [Recovered/Resolved]
  - Off label use [Unknown]
